FAERS Safety Report 5195593-3 (Version None)
Quarter: 2006Q4

REPORT INFORMATION
  Report Type: 
  Country: None (occurrence: None)
  Receive Date: 20061226
  Receipt Date: 20061226
  Transmission Date: 20070319
  Serious: Yes (Hospitalization)
  Sender: FDA-Public Use
  Company Number: None

PATIENT
  Age: 71 Year
  Sex: Male
  Weight: 63.6 kg

DRUGS (3)
  1. CETUXIMAB [Suspect]
     Dosage: 483 MG
     Dates: start: 20061005, end: 20061214
  2. OXALIPLATIN [Suspect]
     Dosage: 164 MG
     Dates: start: 20061005, end: 20061214
  3. LOVENOX [Concomitant]

REACTIONS (3)
  - DEEP VEIN THROMBOSIS [None]
  - FATIGUE [None]
  - PULMONARY EMBOLISM [None]
